FAERS Safety Report 4485771-0 (Version None)
Quarter: 2004Q4

REPORT INFORMATION
  Report Type: 
  Country: None (occurrence: None)
  Receive Date: 20041021
  Receipt Date: 20041008
  Transmission Date: 20050328
  Serious: Yes (Hospitalization)
  Sender: FDA-Public Use
  Company Number: HQWYE095625MAR04

PATIENT
  Age: 58 Year
  Sex: Female
  Weight: 91.17 kg

DRUGS (14)
  1. RAPAMUNE [Suspect]
     Indication: PROPHYLAXIS AGAINST TRANSPLANT REJECTION
     Dosage: 2 MG 1X PER 1 DAY, ORAL
     Route: 048
     Dates: start: 20031126
  2. PROGRAF [Concomitant]
  3. PREDNISONE [Concomitant]
  4. IRON (IRON) [Concomitant]
  5. MYCELEX [Concomitant]
  6. BACTRIM [Concomitant]
  7. VALCYTE [Concomitant]
  8. COLACE (DOCUSATE SODIUM) [Concomitant]
  9. LOPRESSOR [Concomitant]
  10. PROCARDIA [Concomitant]
  11. PROTONIX [Concomitant]
  12. ZOCOR [Concomitant]
  13. INSULIN [Concomitant]
  14. ASPIRIN [Concomitant]

REACTIONS (6)
  - BLOOD CREATININE INCREASED [None]
  - BLOOD GLUCOSE INCREASED [None]
  - LIVER FUNCTION TEST ABNORMAL [None]
  - MITRAL VALVE INCOMPETENCE [None]
  - PNEUMONIA [None]
  - PULMONARY HYPERTENSION [None]
